FAERS Safety Report 5497027-8 (Version None)
Quarter: 2007Q4

REPORT INFORMATION
  Report Type: 
  Country: None (occurrence: None)
  Receive Date: 20071025
  Receipt Date: 20071012
  Transmission Date: 20080405
  Serious: Yes (Death)
  Sender: FDA-Public Use
  Company Number: US-AVENTIS-200717322US

PATIENT

DRUGS (1)
  1. RILUTEK [Suspect]
     Dosage: DOSE: UNK

REACTIONS (1)
  - DEATH [None]
